FAERS Safety Report 6898485-4 (Version None)
Quarter: 2010Q3

REPORT INFORMATION
  Report Type: 
  Country: None (occurrence: None)
  Receive Date: 20100802
  Receipt Date: 20071019
  Transmission Date: 20110219
  Serious: Yes (Other)
  Sender: FDA-Public Use
  Company Number: US-PFIZER INC-2007074880

PATIENT
  Age: 62 Year
  Sex: Male
  Weight: 82.1 kg

DRUGS (1)
  1. LYRICA [Suspect]
     Indication: MIGRAINE
     Route: 048
     Dates: start: 20070529, end: 20070611

REACTIONS (1)
  - DYSPNOEA [None]
